FAERS Safety Report 8392550-0 (Version None)
Quarter: 2012Q2

REPORT INFORMATION
  Report Type: 
  Country: None (occurrence: None)
  Receive Date: 20120529
  Receipt Date: 20120517
  Transmission Date: 20120825
  Serious: Yes (Hospitalization)
  Sender: FDA-Public Use
  Company Number: JP-MERCK-1204USA01207

PATIENT
  Age: 68 Year
  Sex: Male

DRUGS (5)
  1. AMARYL [Concomitant]
     Route: 065
     Dates: start: 20111015
  2. LEVEMIR [Concomitant]
     Route: 065
     Dates: start: 20100521
  3. OLMESARTAN MEDOXOMIL [Concomitant]
     Route: 065
     Dates: start: 20110709
  4. JANUVIA [Suspect]
     Indication: TYPE 2 DIABETES MELLITUS
     Route: 048
     Dates: start: 20111015
  5. AMARYL [Concomitant]
     Route: 065
     Dates: start: 20000610, end: 20111014

REACTIONS (5)
  - COLD SWEAT [None]
  - HYPERGLYCAEMIA [None]
  - CARDIAC FAILURE [None]
  - MYOCARDIAL INFARCTION [None]
  - FEELING HOT [None]
